FAERS Safety Report 8373865-9 (Version None)
Quarter: 2012Q2

REPORT INFORMATION
  Report Type: 
  Country: None (occurrence: None)
  Receive Date: 20120521
  Receipt Date: 20120514
  Transmission Date: 20120825
  Serious: Yes (Hospitalization)
  Sender: FDA-Public Use
  Company Number: JP-ABBOTT-12P-087-0935095-00

PATIENT
  Sex: Male

DRUGS (2)
  1. CLARITHROMYCIN [Suspect]
     Indication: INFECTION
     Dosage: 400MG DAILY
     Route: 048
     Dates: start: 20120420, end: 20120423
  2. AMIODARONE HYDROCHLORIDE [Suspect]
     Indication: ARRHYTHMIA
     Dosage: 200MG DAILY
     Route: 048
     Dates: start: 20120411, end: 20120423

REACTIONS (2)
  - FEBRILE NEUTROPENIA [None]
  - AGRANULOCYTOSIS [None]
